FAERS Safety Report 9382132 (Version 1)
Quarter: 2013Q3

REPORT INFORMATION
  Report Type: Spontaneous
  Country: US (occurrence: None)
  Receive Date: 20130702
  Receipt Date: 20130702
  Transmission Date: 20140515
  Serious: Yes (Death)
  Sender: FDA-Public Use
  Company Number: None

PATIENT
  Age: 79 Year
  Sex: Male
  Weight: 45.36 kg

DRUGS (10)
  1. FLECTOR PATCHES [Suspect]
     Indication: MUSCULOSKELETAL PAIN
     Dosage: 1 PATCH  TWIVE A DAY  TRANSDERMAL
     Route: 062
  2. PROPRANOLOL [Concomitant]
  3. BACLOFEN [Concomitant]
  4. ETODOLAC [Concomitant]
  5. VITAMIN D [Concomitant]
  6. AMOXACILLIN [Concomitant]
  7. TRAMADOL [Concomitant]
  8. LEVOTHYROXINE [Concomitant]
  9. CLARITHROMYCIN [Concomitant]
  10. HYDROCO/APAP [Concomitant]

REACTIONS (6)
  - Flatulence [None]
  - Rectal haemorrhage [None]
  - Asthenia [None]
  - Disorientation [None]
  - Pneumonia [None]
  - Staphylococcal infection [None]
